FAERS Safety Report 22179924 (Version 3)
Quarter: 2025Q4

REPORT INFORMATION
  Report Type: Spontaneous
  Country: CH (occurrence: CH)
  Receive Date: 20230406
  Receipt Date: 20251007
  Transmission Date: 20260118
  Serious: Yes (Hospitalization, Other)
  Sender: ABBVIE
  Company Number: CH-ABBVIE-4712273

PATIENT
  Age: 18 Year
  Sex: Male

DRUGS (8)
  1. VENETOCLAX [Suspect]
     Active Substance: VENETOCLAX
     Indication: Acute myeloid leukaemia
     Route: 048
  2. Atovaquone;Proguanil hydrochloride [Concomitant]
     Indication: Prophylaxis
     Dosage: 1,500 MG/24H ORALLY
     Route: 048
  3. TACROLIMUS [Concomitant]
     Active Substance: TACROLIMUS
     Indication: Prophylaxis against graft versus host disease
     Route: 065
  4. ACYCLOVIR [Concomitant]
     Active Substance: ACYCLOVIR
     Indication: Prophylaxis
     Dosage: 500 MG/8H INTRAVENOUSLY (IV)
     Route: 042
  5. CYCLOPHOSPHAMIDE [Concomitant]
     Active Substance: CYCLOPHOSPHAMIDE
     Indication: Prophylaxis against graft versus host disease
     Route: 065
  6. AZACITIDINE [Suspect]
     Active Substance: AZACITIDINE
     Indication: Acute myeloid leukaemia
     Route: 065
  7. MYCOPHENOLATE MOFETIL [Concomitant]
     Active Substance: MYCOPHENOLATE MOFETIL
     Indication: Prophylaxis against graft versus host disease
     Route: 065
  8. LETERMOVIR [Concomitant]
     Active Substance: LETERMOVIR
     Indication: Prophylaxis
     Dosage: 480 MG/24H/PO
     Route: 048

REACTIONS (20)
  - Allogenic stem cell transplantation [Unknown]
  - Hypermetabolism [Unknown]
  - Periostitis [Unknown]
  - Febrile neutropenia [Unknown]
  - Pleural effusion [Unknown]
  - Mobility decreased [Unknown]
  - Pulmonary mucormycosis [Unknown]
  - Renal injury [Unknown]
  - Surgery [Unknown]
  - Arthropathy [Unknown]
  - Febrile neutropenia [Unknown]
  - Skin lesion inflammation [Unknown]
  - Nodule [Unknown]
  - Fusarium infection [Unknown]
  - Blood beta-D-glucan positive [Unknown]
  - Neutropenia [Unknown]
  - Thrombosis [Unknown]
  - Allogenic stem cell transplantation [Unknown]
  - Infection [Unknown]
  - Fusarium infection [Unknown]
